FAERS Safety Report 6833773-9 (Version None)
Quarter: 2010Q3

REPORT INFORMATION
  Report Type: 
  Country: None (occurrence: None)
  Receive Date: 20100712
  Receipt Date: 20070604
  Transmission Date: 20110219
  Serious: No
  Sender: FDA-Public Use
  Company Number: US-PFIZER INC-2007026643

PATIENT
  Sex: Female
  Weight: 90.72 kg

DRUGS (7)
  1. CHANTIX [Suspect]
     Indication: SMOKING CESSATION THERAPY
     Dates: start: 20070301
  2. DYAZIDE [Concomitant]
  3. LOTREL [Concomitant]
  4. ATENOLOL [Concomitant]
  5. ZETIA [Concomitant]
  6. LIPITOR [Concomitant]
  7. WARFARIN SODIUM [Concomitant]

REACTIONS (2)
  - HEADACHE [None]
  - UPPER RESPIRATORY TRACT INFECTION [None]
